FAERS Safety Report 9785938 (Version 2)
Quarter: 2014Q1

REPORT INFORMATION
  Report Type: Spontaneous
  Country: US (occurrence: US)
  Receive Date: 20131227
  Receipt Date: 20140108
  Transmission Date: 20141002
  Serious: No
  Sender: FDA-Public Use
  Company Number: US-PFIZER INC-2013367466

PATIENT
  Age: 86 Year
  Sex: Female
  Weight: 63.04 kg

DRUGS (9)
  1. ADVIL [Suspect]
     Indication: BACK PAIN
     Dosage: TWO TABLETS, TWO TIMES A DAY
     Dates: start: 20131213
  2. ADVIL [Suspect]
     Indication: PAIN
  3. ADVIL [Suspect]
     Indication: HEADACHE
  4. ADVIL [Suspect]
     Indication: OSTEOARTHRITIS
  5. ADVIL [Suspect]
     Indication: ARTHRITIS
  6. BABY ASPIRIN [Concomitant]
     Indication: ANTICOAGULANT THERAPY
     Dosage: 81 MG, DAILY
  7. AMIODARONE [Concomitant]
     Indication: ATRIAL FIBRILLATION
     Dosage: UNK
  8. TENORMIN [Concomitant]
     Indication: ATRIAL FIBRILLATION
     Dosage: UNK
  9. SYNTHROID [Concomitant]
     Dosage: 112 MCG, DAILY

REACTIONS (2)
  - Oral discomfort [Recovered/Resolved]
  - Drug ineffective [Unknown]
